FAERS Safety Report 7316752-7 (Version None)
Quarter: 2011Q1

REPORT INFORMATION
  Report Type: 
  Country: None (occurrence: None)
  Receive Date: 20110226
  Receipt Date: 20100805
  Transmission Date: 20110831
  Serious: No
  Sender: FDA-Public Use
  Company Number: US-ALLERGAN-1010168US

PATIENT
  Age: 42 Year
  Sex: Female

DRUGS (1)
  1. BOTOX COSMETIC [Suspect]
     Indication: SKIN WRINKLING
     Dosage: 20 UNITS, SINGLE
     Route: 030
     Dates: start: 20100730, end: 20100730

REACTIONS (6)
  - NERVOUSNESS [None]
  - PAIN [None]
  - DIARRHOEA [None]
  - SWOLLEN TONGUE [None]
  - ABDOMINAL PAIN [None]
  - VOMITING [None]
